FAERS Safety Report 22112488 (Version 2)
Quarter: 2023Q1

REPORT INFORMATION
  Report Type: Spontaneous
  Country: US (occurrence: US)
  Receive Date: 20230319
  Receipt Date: 20230330
  Transmission Date: 20230418
  Serious: Yes (Hospitalization)
  Sender: FDA-Public Use
  Company Number: US-JNJFOC-20230334751

PATIENT
  Age: 20 Year
  Sex: Male
  Weight: 68.100 kg

DRUGS (7)
  1. INVEGA SUSTENNA [Suspect]
     Active Substance: PALIPERIDONE PALMITATE
     Indication: Bipolar I disorder
     Route: 030
     Dates: start: 20230208
  2. INVEGA SUSTENNA [Suspect]
     Active Substance: PALIPERIDONE PALMITATE
     Route: 030
     Dates: start: 20230214
  3. INVEGA SUSTENNA [Suspect]
     Active Substance: PALIPERIDONE PALMITATE
  4. LITHIUM [Concomitant]
     Active Substance: LITHIUM
     Dates: start: 20230128
  5. LITHIUM [Concomitant]
     Active Substance: LITHIUM
     Dates: start: 20230215, end: 20230217
  6. ACCUTANE [Concomitant]
     Active Substance: ISOTRETINOIN
  7. SERTRALINE [Concomitant]
     Active Substance: SERTRALINE HYDROCHLORIDE

REACTIONS (5)
  - Hospitalisation [Unknown]
  - Feeling abnormal [Unknown]
  - Parkinsonism [Unknown]
  - Drug ineffective [Unknown]
  - Off label use [Unknown]

NARRATIVE: CASE EVENT DATE: 20230216
